FAERS Safety Report 8054009-X (Version None)
Quarter: 2012Q1

REPORT INFORMATION
  Report Type: 
  Country: None (occurrence: None)
  Receive Date: 20120118
  Receipt Date: 20120110
  Transmission Date: 20120608
  Serious: Yes (Other)
  Sender: FDA-Public Use
  Company Number: US-TEVA-317253USA

PATIENT
  Age: 70 Year
  Sex: Female

DRUGS (2)
  1. FENTANYL [Concomitant]
     Route: 062
  2. FENTORA [Suspect]
     Indication: BREAKTHROUGH PAIN
     Dosage: PRN
     Route: 002

REACTIONS (2)
  - INTENTIONAL DRUG MISUSE [None]
  - TOOTHACHE [None]
